FAERS Safety Report 10190159 (Version 2)
Quarter: 2014Q2

REPORT INFORMATION
  Report Type: Spontaneous
  Country: US (occurrence: US)
  Receive Date: 20140522
  Receipt Date: 20140624
  Transmission Date: 20141212
  Serious: Yes (Hospitalization)
  Sender: FDA-Public Use
  Company Number: US-009507513-1405USA009885

PATIENT
  Age: 53 Year
  Sex: Female
  Weight: 101.59 kg

DRUGS (6)
  1. DEXAMETHASONE [Suspect]
     Indication: PREMEDICATION
     Dosage: 20 MG
     Route: 048
     Dates: start: 20140305, end: 20140306
  2. CARVEDILOL [Concomitant]
     Indication: HYPERTENSION
     Dosage: 12.5MG
     Route: 048
     Dates: start: 2008
  3. LISINOPRIL [Concomitant]
     Indication: HYPERTENSION
     Dosage: 10 MG
     Route: 048
     Dates: start: 2008
  4. SIMVASTATIN TABLETS, USP [Concomitant]
     Indication: HYPERLIPIDAEMIA
     Dosage: 20 MG
     Route: 048
     Dates: start: 2008
  5. INSULIN LISPRO [Concomitant]
     Indication: TYPE 1 DIABETES MELLITUS
     Dosage: 47MICRO-G/ML
     Route: 058
     Dates: start: 1969
  6. INSULIN GLARGINE [Concomitant]
     Indication: TYPE 1 DIABETES MELLITUS
     Dosage: 50 MICRO-G/ML
     Route: 058
     Dates: start: 1969

REACTIONS (1)
  - Hyperglycaemia [Recovered/Resolved]
